FAERS Safety Report 5454851-5 (Version None)
Quarter: 2007Q3

REPORT INFORMATION
  Report Type: 
  Country: None (occurrence: None)
  Receive Date: 20070917
  Receipt Date: 20061115
  Transmission Date: 20080115
  Serious: Yes (Life-Threatening, Hospitalization, Disabling)
  Sender: FDA-Public Use
  Company Number: US-ASTRAZENECA-2006UW19191

PATIENT
  Age: 68 Year
  Sex: Female
  Weight: 117.7 kg

DRUGS (8)
  1. SEROQUEL [Suspect]
     Indication: BIPOLAR I DISORDER
     Route: 048
  2. SEROQUEL [Suspect]
     Indication: DEPRESSION
     Route: 048
  3. SEROQUEL [Suspect]
     Dosage: DOSE DECREASED
     Route: 048
     Dates: start: 20060816
  4. SEROQUEL [Suspect]
     Dosage: DOSE DECREASED
     Route: 048
     Dates: start: 20060816
  5. LITHIUM BARBONATE [Concomitant]
     Indication: BIPOLAR I DISORDER
     Route: 048
     Dates: start: 20060625
  6. LITHIUM BARBONATE [Concomitant]
     Indication: DEPRESSION
     Route: 048
     Dates: start: 20060625
  7. KLONOPIN [Concomitant]
     Indication: BIPOLAR I DISORDER
     Route: 048
     Dates: start: 20060605, end: 20060911
  8. KLONOPIN [Concomitant]
     Indication: DEPRESSION
     Route: 048
     Dates: start: 20060605, end: 20060911

REACTIONS (1)
  - CEREBRAL INFARCTION [None]
